FAERS Safety Report 4951842-5 (Version None)
Quarter: 2006Q1

REPORT INFORMATION
  Report Type: 
  Country: None (occurrence: None)
  Receive Date: 20060323
  Receipt Date: 20060215
  Transmission Date: 20060701
  Serious: Yes (Death)
  Sender: FDA-Public Use
  Company Number: JP-MERCK-0602USA05135

PATIENT
  Age: 71 Year
  Sex: Male

DRUGS (18)
  1. PYRIDOXINE HCL [Concomitant]
     Route: 042
     Dates: start: 20051217
  2. RIBOFLAVIN [Concomitant]
     Route: 042
     Dates: start: 20051217
  3. THIAMINE [Concomitant]
     Route: 042
     Dates: start: 20051217
  4. DEXTROSE [Concomitant]
     Route: 042
     Dates: start: 20051217
  5. ACETIC ACID [Concomitant]
     Route: 042
     Dates: start: 20051217
  6. ELECTROLYTES (UNSPECIFIED) [Concomitant]
     Route: 042
     Dates: start: 20051217
  7. AMINO ACIDS (UNSPECIFIED) AND CARBOHYDRATES (UNSPECIFIED) AND ELECTROL [Concomitant]
     Route: 042
     Dates: start: 20051217
  8. ANTIMICROBIAL (UNSPECIFIED) [Concomitant]
     Indication: PNEUMONIA
     Route: 065
     Dates: start: 20051217
  9. ASCORBIC ACID [Concomitant]
     Route: 042
     Dates: start: 20051217
  10. CYANOCOBALAMIN [Concomitant]
     Route: 042
     Dates: start: 20051217
  11. PEPCID RPD [Suspect]
     Indication: PROPHYLAXIS AGAINST GASTROINTESTINAL ULCER
     Route: 048
     Dates: start: 20051227, end: 20060213
  12. PEPCID [Suspect]
     Indication: PROPHYLAXIS AGAINST GASTROINTESTINAL ULCER
     Route: 042
     Dates: start: 20051217, end: 20051226
  13. PEPCID [Suspect]
     Route: 042
     Dates: start: 20060214, end: 20060214
  14. VALPROATE SODIUM [Suspect]
     Indication: STATUS EPILEPTICUS
     Route: 048
     Dates: start: 20051222, end: 20060213
  15. BENSERAZIDE HYDROCHLORIDE AND LEVODOPA [Suspect]
     Indication: PARKINSONISM
     Route: 048
     Dates: start: 20051227, end: 20060213
  16. CERCINE [Suspect]
     Indication: STATUS EPILEPTICUS
     Route: 048
     Dates: start: 20051227, end: 20060213
  17. DOPASTON [Concomitant]
     Indication: PARKINSONISM
     Route: 042
     Dates: start: 20060214, end: 20060215
  18. CABASER [Concomitant]
     Indication: PARKINSONISM
     Route: 048
     Dates: start: 20051227, end: 20060213

REACTIONS (4)
  - GRANULOCYTOPENIA [None]
  - PLATELET COUNT DECREASED [None]
  - PNEUMONIA [None]
  - SEPSIS [None]
